FAERS Safety Report 17812038 (Version 5)
Quarter: 2020Q3

REPORT INFORMATION
  Report Type: Spontaneous
  Country: JP (occurrence: JP)
  Receive Date: 20200521
  Receipt Date: 20200903
  Transmission Date: 20201102
  Serious: Yes (Disabling)
  Sender: FDA-Public Use
  Company Number: JP-ASTRAZENECA-2020SE65533

PATIENT
  Age: 23061 Day
  Sex: Female
  Weight: 43 kg

DRUGS (13)
  1. PACLITAXEL. [Suspect]
     Active Substance: PACLITAXEL
     Indication: OVARIAN CANCER
     Dosage: DOSE UNKNOWN, 2 CYCLES
     Route: 065
     Dates: start: 20160526
  2. IFOSFAMIDE. [Suspect]
     Active Substance: IFOSFAMIDE
     Indication: OVARIAN CANCER
     Dosage: DOSE UNKNOWN, 4 CYCLES
     Route: 065
     Dates: start: 20160711, end: 20161003
  3. DOXIL [Suspect]
     Active Substance: DOXORUBICIN HYDROCHLORIDE
     Indication: OVARIAN CANCER
     Dosage: DOSE UNKNOWN, 6 CYCLES
     Route: 065
     Dates: start: 20181022, end: 201903
  4. LYNPARZA [Suspect]
     Active Substance: OLAPARIB
     Indication: OVARIAN CANCER
     Route: 048
     Dates: start: 20191008, end: 20200427
  5. PACLITAXEL. [Suspect]
     Active Substance: PACLITAXEL
     Indication: OVARIAN CANCER
     Dosage: DOSE UNKNOWN, 2 CYCLES
     Route: 065
     Dates: start: 201802, end: 201803
  6. PACLITAXEL. [Suspect]
     Active Substance: PACLITAXEL
     Indication: OVARIAN CANCER
     Dosage: DOSE UNKNOWN, 9 CYCLES
     Route: 065
     Dates: start: 201404
  7. PACLITAXEL. [Suspect]
     Active Substance: PACLITAXEL
     Indication: OVARIAN CANCER
     Dosage: DOSE UNKNOWN, 6 CYCLES
     Route: 065
     Dates: start: 201706
  8. IFOSFAMIDE. [Suspect]
     Active Substance: IFOSFAMIDE
     Indication: OVARIAN CANCER
     Dosage: DOSE UNKNOWN, 2 CYCLES
     Route: 065
     Dates: start: 201802, end: 201803
  9. CISPLATIN. [Suspect]
     Active Substance: CISPLATIN
     Indication: OVARIAN CANCER
     Dosage: DOSE UNKNOWN, 4 CYCLES
     Route: 065
     Dates: start: 20160711, end: 20161003
  10. NEDAPLATIN [Suspect]
     Active Substance: NEDAPLATIN
     Indication: OVARIAN CANCER
     Dosage: DOSE UNKNOWN, 3 CYCLES
     Route: 065
     Dates: start: 20190607, end: 201908
  11. CARBOPLATIN. [Suspect]
     Active Substance: CARBOPLATIN
     Indication: OVARIAN CANCER
     Dosage: DOSE UNKNOWN, 9 CYCLES
     Route: 065
     Dates: start: 201404
  12. CARBOPLATIN. [Suspect]
     Active Substance: CARBOPLATIN
     Indication: OVARIAN CANCER
     Dosage: DOSE UNKNOWN, 2 CYCLES
     Route: 065
     Dates: start: 20160526, end: 201606
  13. IFOSFAMIDE. [Suspect]
     Active Substance: IFOSFAMIDE
     Indication: OVARIAN CANCER
     Dosage: DOSE UNKNOWN, 6 CYCLES
     Route: 065
     Dates: start: 201706

REACTIONS (3)
  - Platelet count decreased [Not Recovered/Not Resolved]
  - Myelodysplastic syndrome [Not Recovered/Not Resolved]
  - Anaemia [Not Recovered/Not Resolved]

NARRATIVE: CASE EVENT DATE: 20200427
